FAERS Safety Report 25356708 (Version 2)
Quarter: 2025Q4

REPORT INFORMATION
  Report Type: Spontaneous
  Country: EU (occurrence: EU)
  Receive Date: 20250526
  Receipt Date: 20251205
  Transmission Date: 20260117
  Serious: Yes (Hospitalization, Other)
  Sender: AUROBINDO
  Company Number: EU-AEMPS-1669143

PATIENT
  Age: 83 Year
  Sex: Female

DRUGS (11)
  1. SERTRALINE HYDROCHLORIDE [Suspect]
     Active Substance: SERTRALINE HYDROCHLORIDE
     Indication: Product used for unknown indication
     Dosage: 50 MILLIGRAM, ONCE A DAY (1 TABLET / 24 H - ORAL, POOR ADHERENCE)
     Dates: start: 20250117, end: 20250414
  2. MIRTAZAPINE [Suspect]
     Active Substance: MIRTAZAPINE
     Indication: Product used for unknown indication
     Dosage: 7.5 MILLIGRAM, ONCE A DAY (0.5 TABLET / 24 H - ORAL, POOR ADHERENCE)
     Dates: start: 20250220, end: 20250414
  3. INDAPAMIDE [Suspect]
     Active Substance: INDAPAMIDE
     Indication: Hypertension
     Dosage: 1.5 MILLIGRAM (1 TABLET / 24 H - ORAL, ACCORDING TO BLOOD PRESSURE)
     Dates: start: 20150110, end: 20250414
  4. PREGABALIN [Suspect]
     Active Substance: PREGABALIN
     Indication: Product used for unknown indication
     Dosage: UNK (1 CAPSULA / 12 H - V?A ORAL  )
  5. LEVOFLOXACIN [Concomitant]
     Active Substance: LEVOFLOXACIN
     Indication: Urinary tract infection
     Dosage: 500 MILLIGRAM, TWO TIMES A DAY (1 TABLET / 12 H - ORAL
     Dates: start: 20250409
  6. Metoclopramida 10 mg 30 comprimidos [Concomitant]
     Indication: Product used for unknown indication
     Dosage: UNK (1 TABLET / 8 H - ORAL)
  7. Bromazepam 1,5 mg 30 c?psulas [Concomitant]
     Indication: Insomnia
     Dosage: UNK (1 CAPSULE / 24 H - ORAL, IF INSOMNIA)
  8. DUPHALAC 10 G SOLUCION ORAL EN SOBRE , 50 sticks [Concomitant]
     Indication: Product used for unknown indication
     Dosage: UNK (1 ENVELOPE/8H)
  9. Famotidina 20 mg 28 comprimidos [Concomitant]
     Indication: Product used for unknown indication
     Dosage: 20 MILLIGRAM, ONCE A DAY (1 TABLET / 24 H - ORAL)
     Dates: start: 20220618
  10. Solifenacina 5 mg 30 comprimidos [Concomitant]
     Indication: Product used for unknown indication
     Dosage: 5 MILLIGRAM, ONCE A DAY (1 TABLET / 24 H - ORAL)
     Dates: start: 20241219
  11. Tamsulosina 0,4 mg 30 comprimidos liberaci?n modificada [Concomitant]
     Indication: Urinary retention
     Dosage: UNK (1 TABLET / 24 H - ORAL)

REACTIONS (2)
  - Hyponatraemia [Recovered/Resolved]
  - Hypokalaemia [Recovered/Resolved]

NARRATIVE: CASE EVENT DATE: 20250414
